FAERS Safety Report 6520398-8 (Version None)
Quarter: 2009Q4

REPORT INFORMATION
  Report Type: 
  Country: None (occurrence: None)
  Receive Date: 20091229
  Receipt Date: 20091216
  Transmission Date: 20100525
  Serious: Yes (Other)
  Sender: FDA-Public Use
  Company Number: CZ-BAYER-200934127GPV

PATIENT
  Age: 60 Year
  Sex: Female

DRUGS (11)
  1. ALEMTUZUMAB [Suspect]
     Indication: CHRONIC LYMPHOCYTIC LEUKAEMIA
     Route: 065
     Dates: start: 20060925, end: 20061009
  2. RITUXIMAB [Concomitant]
     Indication: CHRONIC LYMPHOCYTIC LEUKAEMIA
     Dosage: 3 CYCLES R-CHOP
     Dates: start: 20051227, end: 20060224
  3. CYCLOPHOSPHAMIDE [Concomitant]
     Indication: CHRONIC LYMPHOCYTIC LEUKAEMIA
     Dosage: 3 CYCLES FC
     Dates: start: 20050912, end: 20051109
  4. CYCLOPHOSPHAMIDE [Concomitant]
     Dosage: 3 CYCLES R-CHOP
     Dates: start: 20051227, end: 20060224
  5. CYCLOPHOSPHAMIDE [Concomitant]
     Dosage: 1 CYCLE CHOP
     Dates: start: 20060330, end: 20060330
  6. DOXORUBICIN HCL [Concomitant]
     Indication: CHRONIC LYMPHOCYTIC LEUKAEMIA
     Dosage: 3 CYCLES R-CHOP
     Dates: start: 20051227, end: 20060224
  7. DOXORUBICIN HCL [Concomitant]
     Dosage: 1 CYCLE CHOP
     Dates: start: 20060330, end: 20060330
  8. VINCRISTINE [Concomitant]
     Indication: CHRONIC LYMPHOCYTIC LEUKAEMIA
     Dosage: 3 CYCLES R-CHOP
     Dates: start: 20051227, end: 20060224
  9. VINCRISTINE [Concomitant]
     Dosage: 1 CYCLE CHOP
     Dates: start: 20060330, end: 20060330
  10. PREDNISONE [Concomitant]
     Indication: CHRONIC LYMPHOCYTIC LEUKAEMIA
     Dosage: 3 CYCLES R-CHOP
     Dates: start: 20051227, end: 20060224
  11. PREDNISONE [Concomitant]
     Dosage: 1 CYCLE CHOP
     Dates: start: 20060330, end: 20060330

REACTIONS (1)
  - GENE MUTATION [None]
